FAERS Safety Report 5913289-4 (Version None)
Quarter: 2008Q4

REPORT INFORMATION
  Report Type: 
  Country: None (occurrence: None)
  Receive Date: 20081008
  Receipt Date: 20081008
  Transmission Date: 20090506
  Serious: Yes (Hospitalization)
  Sender: FDA-Public Use
  Company Number: None

PATIENT
  Age: 78 Year
  Sex: Female
  Weight: 78 kg

DRUGS (1)
  1. POSACONAZOLE [Suspect]
     Indication: CULTURE POSITIVE
     Dosage: 400MG TWICE A DAY PO, NOT SURE OF DURATION
     Route: 048

REACTIONS (6)
  - CONFUSIONAL STATE [None]
  - CONVULSION [None]
  - EYE INJURY [None]
  - FALL [None]
  - HEADACHE [None]
  - LACERATION [None]
